FAERS Safety Report 5290581-0 (Version None)
Quarter: 2007Q2

REPORT INFORMATION
  Report Type: 
  Country: None (occurrence: None)
  Receive Date: 20070405
  Receipt Date: 20070405
  Transmission Date: 20071010
  Serious: No
  Sender: FDA-Public Use
  Company Number: None

PATIENT
  Age: 48 Year
  Sex: Female
  Weight: 127.0072 kg

DRUGS (2)
  1. LEVAQUIN [Suspect]
     Indication: CYSTITIS
     Dosage: 1 PILL 1 X DAY 1 X DAY ORAL
     Route: 048
     Dates: start: 20070307, end: 20070314
  2. LEVAQUIN [Suspect]
     Indication: URINARY TRACT INFECTION
     Dosage: 1 PILL 1 X DAY 1 X DAY ORAL
     Route: 048
     Dates: start: 20070307, end: 20070314

REACTIONS (10)
  - ARTHRALGIA [None]
  - FATIGUE [None]
  - HYPERAESTHESIA [None]
  - INFECTION [None]
  - INFLAMMATION [None]
  - MYALGIA [None]
  - PAIN [None]
  - PAIN IN EXTREMITY [None]
  - SKIN IRRITATION [None]
  - TENDON DISORDER [None]
